FAERS Safety Report 9953387 (Version 1)
Quarter: 2014Q1

REPORT INFORMATION
  Report Type: Report from Study
  Country: US (occurrence: US)
  Receive Date: 20140304
  Receipt Date: 20140304
  Transmission Date: 20141002
  Serious: No
  Sender: FDA-Public Use
  Company Number: US-ABBVIE-13P-163-1073823-00

PATIENT
  Age: 50 Year
  Sex: Male
  Weight: 102.15 kg

DRUGS (2)
  1. HUMIRA [Suspect]
     Indication: PSORIASIS
     Dates: start: 20130302
  2. UNKNOWN BLOOD PRESSURE MEDICINE [Concomitant]
     Indication: HYPERTENSION

REACTIONS (1)
  - Feeling cold [Not Recovered/Not Resolved]
